FAERS Safety Report 24914500 (Version 2)
Quarter: 2025Q1

REPORT INFORMATION
  Report Type: Spontaneous
  Country: US (occurrence: US)
  Receive Date: 20250203
  Receipt Date: 20250207
  Transmission Date: 20250408
  Serious: No
  Sender: ASTELLAS
  Company Number: US-ASTELLAS-2025-AER-005402

PATIENT
  Age: 54 Year
  Sex: Female

DRUGS (1)
  1. VEOZAH [Suspect]
     Active Substance: FEZOLINETANT
     Indication: Hot flush
     Route: 050

REACTIONS (4)
  - Hepatic enzyme increased [Unknown]
  - Fatigue [Unknown]
  - Abdominal pain [Unknown]
  - Jaundice [Unknown]
